FAERS Safety Report 8322859 (Version 6)
Quarter: 2012Q4

REPORT INFORMATION
  Report Type: Report from Study
  Country: DE (occurrence: DE)
  Receive Date: 20120105
  Receipt Date: 20121217
  Transmission Date: 20130627
  Serious: Yes (Other)
  Sender: FDA-Public Use
  Company Number: DE-UCBSA-048463

PATIENT
  Sex: Female
  Weight: 63 kg

DRUGS (4)
  1. CIMZIA [Suspect]
     Indication: RHEUMATOID ARTHRITIS
     Dosage: 34 INJECTIONS
     Route: 058
     Dates: start: 201007, end: 201110
  2. METHOTREXATE [Concomitant]
     Indication: RHEUMATOID ARTHRITIS
     Dosage: DOSE: 10 MG, QS
     Route: 058
     Dates: start: 200907
  3. PREDNISOLON [Concomitant]
     Indication: RHEUMATOID ARTHRITIS
     Route: 048
     Dates: start: 200907
  4. SIMVASTATIN [Concomitant]
     Indication: HYPERCHOLESTEROLAEMIA
     Dosage: DOSE: 20 MG,Q
     Route: 048
     Dates: start: 20101209

REACTIONS (1)
  - Squamous cell carcinoma [Recovered/Resolved]
